FAERS Safety Report 11897964 (Version 1)
Quarter: 2016Q1

REPORT INFORMATION
  Report Type: Report from Study
  Country: US (occurrence: US)
  Receive Date: 20160108
  Receipt Date: 20160108
  Transmission Date: 20160526
  Serious: Yes (Other)
  Sender: FDA-Public Use
  Company Number: US-BIOGEN-2015BI070373

PATIENT
  Age: 32 Year
  Sex: Female
  Weight: 60.84 kg

DRUGS (41)
  1. BRIMONODINE TITRATE [Concomitant]
     Indication: PHOTOSENSITIVITY REACTION
     Route: 047
  2. VITAMIN C [Concomitant]
     Active Substance: ASCORBIC ACID
  3. BIIB033 [Suspect]
     Active Substance: OPICINUMAB
     Indication: MULTIPLE SCLEROSIS
     Route: 042
     Dates: start: 20140326, end: 20150226
  4. AVONEX [Concomitant]
     Active Substance: INTERFERON BETA-1A
     Indication: MULTIPLE SCLEROSIS
     Route: 030
     Dates: start: 20140326, end: 20150226
  5. MAGNESIUM [Concomitant]
     Active Substance: MAGNESIUM
  6. DICYCLOMINE [Concomitant]
     Active Substance: DICYCLOMINE HYDROCHLORIDE
     Indication: ULCER
  7. PHENERGAN [Concomitant]
     Active Substance: PROMETHAZINE HYDROCHLORIDE
     Indication: MIGRAINE
  8. LINZESS [Concomitant]
     Active Substance: LINACLOTIDE
     Indication: IRRITABLE BOWEL SYNDROME
  9. ALPRAZOLAM. [Concomitant]
     Active Substance: ALPRAZOLAM
     Indication: POST-TRAUMATIC STRESS DISORDER
  10. TOPAMAX [Concomitant]
     Active Substance: TOPIRAMATE
     Indication: DEPRESSION
     Route: 048
  11. AMPYRA [Concomitant]
     Active Substance: DALFAMPRIDINE
     Indication: ATAXIA
     Route: 048
     Dates: start: 20131024
  12. CETIRIZINE HYDROCHLORIDE. [Concomitant]
     Active Substance: CETIRIZINE HYDROCHLORIDE
     Indication: MULTIPLE ALLERGIES
  13. VITAMIN B12 [Concomitant]
     Active Substance: CYANOCOBALAMIN
     Indication: ANAEMIA
     Route: 030
  14. VITAMIN E [Concomitant]
     Active Substance: .ALPHA.-TOCOPHEROL
  15. LATUDA [Concomitant]
     Active Substance: LURASIDONE HYDROCHLORIDE
     Indication: POST-TRAUMATIC STRESS DISORDER
  16. NUVIGIL [Concomitant]
     Active Substance: ARMODAFINIL
     Indication: FATIGUE
     Route: 048
     Dates: start: 20131024
  17. TOPAMAX [Concomitant]
     Active Substance: TOPIRAMATE
     Indication: BIPOLAR DISORDER
     Route: 048
     Dates: start: 20121201
  18. TOPAMAX [Concomitant]
     Active Substance: TOPIRAMATE
     Indication: POST-TRAUMATIC STRESS DISORDER
  19. VALOCYCLOVIR HYDROCHLORIDE [Concomitant]
  20. CYMBALTA [Concomitant]
     Active Substance: DULOXETINE HYDROCHLORIDE
     Indication: POST-TRAUMATIC STRESS DISORDER
  21. VIMPAT [Concomitant]
     Active Substance: LACOSAMIDE
     Indication: MUSCLE SPASMS
  22. VITAMIN D3 [Concomitant]
     Active Substance: CHOLECALCIFEROL
  23. ALPRAZOLAM. [Concomitant]
     Active Substance: ALPRAZOLAM
     Indication: PANIC ATTACK
     Route: 048
     Dates: start: 20130101
  24. BACLOFEN. [Concomitant]
     Active Substance: BACLOFEN
     Indication: PAIN
     Route: 048
     Dates: start: 20140326
  25. NORCO [Concomitant]
     Active Substance: ACETAMINOPHEN\HYDROCODONE BITARTRATE
     Indication: PAIN
  26. TRAZODONE HYDROCHLORIDE. [Concomitant]
     Active Substance: TRAZODONE HYDROCHLORIDE
     Indication: POST-TRAUMATIC STRESS DISORDER
  27. NEXIUM [Concomitant]
     Active Substance: ESOMEPRAZOLE MAGNESIUM
     Indication: ULCER
     Route: 048
  28. EPIPEN [Concomitant]
     Active Substance: EPINEPHRINE
     Route: 030
  29. VITAMIN A [Concomitant]
     Active Substance: VITAMIN A
  30. LATUDA [Concomitant]
     Active Substance: LURASIDONE HYDROCHLORIDE
     Indication: DEPRESSION
     Route: 048
     Dates: start: 20140317
  31. ALPRAZOLAM. [Concomitant]
     Active Substance: ALPRAZOLAM
     Indication: DEPRESSION
  32. DICYCLOMINE [Concomitant]
     Active Substance: DICYCLOMINE HYDROCHLORIDE
     Indication: IRRITABLE BOWEL SYNDROME
     Route: 048
     Dates: start: 20130601
  33. NORCO [Concomitant]
     Active Substance: ACETAMINOPHEN\HYDROCODONE BITARTRATE
     Indication: MIGRAINE
     Route: 048
     Dates: start: 20120901
  34. IRON INFUSIONS [Concomitant]
     Indication: ANAEMIA
     Route: 042
     Dates: start: 20111201
  35. CYMBALTA [Concomitant]
     Active Substance: DULOXETINE HYDROCHLORIDE
     Indication: BIPOLAR DISORDER
  36. PHENERGAN [Concomitant]
     Active Substance: PROMETHAZINE HYDROCHLORIDE
  37. RELPAX [Concomitant]
     Active Substance: ELETRIPTAN HYDROBROMIDE
     Indication: MIGRAINE
  38. ZINC CHELATED [Concomitant]
  39. SINGULAIR [Concomitant]
     Active Substance: MONTELUKAST SODIUM
     Indication: MULTIPLE ALLERGIES
  40. CEPHALEXIN MONOHYDRATE. [Concomitant]
     Active Substance: CEPHALEXIN MONOHYDRATE
     Indication: INFECTION PROPHYLAXIS
  41. CALCIUM WITH VITAMIN D [Concomitant]
     Active Substance: CALCIUM\VITAMIN D

REACTIONS (1)
  - Hepatic enzyme increased [Recovered/Resolved]

NARRATIVE: CASE EVENT DATE: 20150227
